FAERS Safety Report 16302564 (Version 1)
Quarter: 2019Q2

REPORT INFORMATION
  Report Type: Spontaneous
  Country: US (occurrence: US)
  Receive Date: 20190513
  Receipt Date: 20190513
  Transmission Date: 20190711
  Serious: No
  Sender: FDA-Public Use
  Company Number: US-GRANULES INDIA LIMITED-2066913

PATIENT
  Sex: Female

DRUGS (1)
  1. METHOCARBAMOL TABLETS [Suspect]
     Active Substance: METHOCARBAMOL
     Indication: FIBROMYALGIA
     Route: 065

REACTIONS (5)
  - Fluid retention [Unknown]
  - Irritable bowel syndrome [Unknown]
  - Condition aggravated [Unknown]
  - Malaise [Unknown]
  - Product dispensing error [Unknown]
